FAERS Safety Report 4551415-2 (Version None)
Quarter: 2005Q1

REPORT INFORMATION
  Report Type: 
  Country: None (occurrence: None)
  Receive Date: 20050107
  Receipt Date: 20041228
  Transmission Date: 20050727
  Serious: Yes (Hospitalization)
  Sender: FDA-Public Use
  Company Number: ITWYE308629DEC04

PATIENT
  Age: 73 Year
  Sex: Female

DRUGS (7)
  1. EFFEXOR [Suspect]
     Indication: DEPRESSION
     Dosage: 75 MG 1X PER 1 DAY ORAL
     Route: 048
     Dates: start: 20040928, end: 20041218
  2. HYDROCHLOROTHIAZIDE [Concomitant]
  3. ASPIRIN [Concomitant]
  4. COVERSYL (PERINDOPRIL) [Concomitant]
  5. TORVAST (ATORVASTATIN CALCIUM) [Concomitant]
  6. NORVASC [Concomitant]
  7. PANTORC (PANTOPRAZOLE SODIUM) [Concomitant]

REACTIONS (5)
  - ADAMS-STOKES SYNDROME [None]
  - ASTHENIA [None]
  - BLOOD POTASSIUM DECREASED [None]
  - INAPPROPRIATE ANTIDIURETIC HORMONE SECRETION [None]
  - MYALGIA [None]
